FAERS Safety Report 18330495 (Version 1)
Quarter: 2020Q3

REPORT INFORMATION
  Report Type: Spontaneous
  Country: DE (occurrence: DE)
  Receive Date: 20200930
  Receipt Date: 20200930
  Transmission Date: 20201103
  Serious: Yes (Hospitalization)
  Sender: FDA-Public Use
  Company Number: NVSC2020DE261931

PATIENT
  Age: 64 Year
  Sex: Female
  Weight: 55 kg

DRUGS (17)
  1. PREDNISOLONE. [Concomitant]
     Active Substance: PREDNISOLONE
     Dosage: 100 MG, QD
     Route: 042
     Dates: start: 20190508, end: 20190508
  2. SATIVEX [Concomitant]
     Active Substance: NABIXIMOLS
     Indication: PRODUCT USED FOR UNKNOWN INDICATION
     Dosage: UNK
     Route: 048
  3. LORAZEPAM. [Suspect]
     Active Substance: LORAZEPAM
     Indication: TRIGEMINAL NEURALGIA
     Dosage: 2 MG, QD
     Route: 048
     Dates: start: 20200325, end: 20200325
  4. OXCARBAZEPINE. [Suspect]
     Active Substance: OXCARBAZEPINE
     Indication: TRIGEMINAL NEURALGIA
     Dosage: 1200 MG
     Route: 048
     Dates: start: 202003
  5. OCRELIZUMAB. [Suspect]
     Active Substance: OCRELIZUMAB
     Dosage: 600 MG
     Route: 042
     Dates: start: 20191017
  6. TAVOR [Concomitant]
     Indication: MUSCLE SPASTICITY
  7. AERIUS [Concomitant]
     Dosage: 5 MG
     Route: 048
     Dates: start: 20190507, end: 20190509
  8. TAVOR [Concomitant]
     Indication: PAIN
     Dosage: 1 MG
     Route: 048
     Dates: start: 20200326
  9. VENLAFAXINE [Concomitant]
     Active Substance: VENLAFAXINE HYDROCHLORIDE
     Indication: PRODUCT USED FOR UNKNOWN INDICATION
     Dosage: 37.5 MG, QD
     Route: 048
     Dates: start: 20200410, end: 20200417
  10. OCRELIZUMAB. [Suspect]
     Active Substance: OCRELIZUMAB
     Indication: RELAPSING MULTIPLE SCLEROSIS
     Dosage: 300 MG
     Route: 042
     Dates: start: 20190423, end: 20190508
  11. RANITIDINE. [Concomitant]
     Active Substance: RANITIDINE
     Indication: PRODUCT USED FOR UNKNOWN INDICATION
     Dosage: 300 MG
     Route: 048
     Dates: start: 20190422, end: 20190424
  12. DEKRISTOL [Concomitant]
     Active Substance: CHOLECALCIFEROL
     Indication: PROPHYLAXIS
     Dosage: 20000 IU, QW
     Route: 048
     Dates: start: 20190415
  13. RANITIDINE. [Concomitant]
     Active Substance: RANITIDINE
     Dosage: 300 MG
     Route: 048
     Dates: start: 20190507, end: 20190509
  14. VENLAFAXINE [Concomitant]
     Active Substance: VENLAFAXINE HYDROCHLORIDE
     Dosage: 37.5 MG
     Route: 048
     Dates: start: 20200418
  15. OXCARBAZEPINE. [Suspect]
     Active Substance: OXCARBAZEPINE
     Indication: ATAXIA
     Dosage: 150 MG
     Route: 048
  16. PREDNISOLONE. [Concomitant]
     Active Substance: PREDNISOLONE
     Indication: PRODUCT USED FOR UNKNOWN INDICATION
     Dosage: 100 MG, QD
     Route: 042
     Dates: start: 20190423
  17. AERIUS [Concomitant]
     Indication: PRODUCT USED FOR UNKNOWN INDICATION
     Dosage: 5 MG
     Route: 048
     Dates: start: 20190422, end: 20190424

REACTIONS (2)
  - Ataxia [Recovered/Resolved]
  - Trigeminal neuralgia [Unknown]

NARRATIVE: CASE EVENT DATE: 20200326
